FAERS Safety Report 14686631 (Version 1)
Quarter: 2018Q1

REPORT INFORMATION
  Report Type: Report from Study
  Country: US (occurrence: US)
  Receive Date: 20180327
  Receipt Date: 20180327
  Transmission Date: 20180509
  Serious: Yes (Hospitalization, Other)
  Sender: FDA-Public Use
  Company Number: US-MYLANLABS-2018M1017829

PATIENT
  Age: 16 Year
  Sex: Male
  Weight: 64.3 kg

DRUGS (6)
  1. LENVATINIB [Suspect]
     Active Substance: LENVATINIB
     Dosage: 24 MG, QD
     Route: 048
     Dates: start: 20171202, end: 20171228
  2. LENVATINIB [Suspect]
     Active Substance: LENVATINIB
     Indication: OSTEOSARCOMA
     Dosage: 24 MG, QD
     Route: 048
     Dates: start: 20171127, end: 20171130
  3. IFOSFAMIDE. [Suspect]
     Active Substance: IFOSFAMIDE
     Indication: OSTEOSARCOMA
     Dosage: 3000 MG/M2, CYCLE REPEATED EVERY 21 DAYS
     Route: 042
     Dates: start: 20171128, end: 20180221
  4. LENVATINIB [Suspect]
     Active Substance: LENVATINIB
     Dosage: 10 MG, QD
     Route: 048
     Dates: start: 20171201, end: 20171201
  5. LENVATINIB [Suspect]
     Active Substance: LENVATINIB
     Dosage: 24 MG, QD
     Route: 048
     Dates: start: 20171229, end: 20180228
  6. ETOPOSIDE. [Suspect]
     Active Substance: ETOPOSIDE
     Indication: OSTEOSARCOMA
     Dosage: 100 MG/M2, CYCLE
     Route: 042
     Dates: start: 20171128, end: 20180201

REACTIONS (1)
  - Pneumothorax [Recovered/Resolved]

NARRATIVE: CASE EVENT DATE: 201802
